FAERS Safety Report 10914649 (Version 1)
Quarter: 2015Q1

REPORT INFORMATION
  Report Type: Spontaneous
  Country: BR (occurrence: BR)
  Receive Date: 20150313
  Receipt Date: 20150313
  Transmission Date: 20150721
  Serious: Yes (Other)
  Sender: FDA-Public Use
  Company Number: BR-GLAXOSMITHKLINE-BR2015GSK032369

PATIENT
  Sex: Female
  Weight: 65 kg

DRUGS (9)
  1. ARADOIS [Concomitant]
     Active Substance: LOSARTAN POTASSIUM
     Indication: BLOOD PRESSURE ABNORMAL
     Dosage: 1 UNK, QD
     Route: 048
  2. VENOCUR TRIPLEX [Concomitant]
     Indication: CHONDROPLASTY
     Dosage: 1 UNK, QD
     Route: 048
  3. CYMBALTA [Concomitant]
     Active Substance: DULOXETINE HYDROCHLORIDE
     Indication: SEDATION
     Dosage: 1 UNK, QD
     Route: 048
  4. SYNTHROID [Concomitant]
     Active Substance: LEVOTHYROXINE SODIUM
     Indication: THYROID DISORDER
     Dosage: 1 UNK, QD
     Route: 048
  5. FLUIMUCIL [Concomitant]
     Active Substance: ACETYLCYSTEINE
     Indication: RESPIRATORY DISORDER
     Dosage: 1 UNK, QD
     Route: 048
  6. DEPURA [Concomitant]
     Active Substance: CHOLECALCIFEROL
     Indication: HYPOVITAMINOSIS
     Dosage: 5 UNK, QD
     Route: 048
  7. SERETIDE [Suspect]
     Active Substance: FLUTICASONE FUROATE\SALMETEROL XINAFOATE
     Indication: RESPIRATORY DISORDER
     Dosage: 1 PUFF(S), BID
     Route: 048
  8. SELOZOK [Concomitant]
     Active Substance: METOPROLOL SUCCINATE
     Indication: BLOOD PRESSURE ABNORMAL
     Dosage: 1.5 UNK, QD
     Route: 048
  9. SUPRADYN [Concomitant]
     Active Substance: ASCORBIC ACID\MINERALS\VITAMINS
     Indication: HYPOVITAMINOSIS
     Dosage: 1 UNK, QD

REACTIONS (1)
  - Haemorrhoids [Not Recovered/Not Resolved]
